FAERS Safety Report 4452013-1 (Version None)
Quarter: 2004Q3

REPORT INFORMATION
  Report Type: 
  Country: None (occurrence: None)
  Receive Date: 20040915
  Receipt Date: 20040915
  Transmission Date: 20050211
  Serious: Yes (Hospitalization)
  Sender: FDA-Public Use
  Company Number: None

PATIENT
  Age: 36 Year
  Sex: Male
  Weight: 88.4 kg

DRUGS (16)
  1. NAPROXEN [Suspect]
     Indication: INJURY
     Dosage: 500 MG PO BID
     Route: 048
  2. PHOSLO [Concomitant]
  3. ZOFRAN [Concomitant]
  4. TOPROL-XL [Concomitant]
  5. MINOXIDIL [Concomitant]
  6. DIOVAN [Concomitant]
  7. METOCLOPRAMIDE [Concomitant]
  8. VIT B1 [Concomitant]
  9. FIBER PLUS [Concomitant]
  10. FOLIC ACID [Concomitant]
  11. PROTONIX [Concomitant]
  12. ZYPREXA [Concomitant]
  13. ALPRAZOLAM [Concomitant]
  14. CARTIA XT [Concomitant]
  15. PERCOCET [Concomitant]
  16. DIAZEPAM [Concomitant]

REACTIONS (4)
  - ABDOMINAL PAIN [None]
  - FAECAL OCCULT BLOOD POSITIVE [None]
  - HAEMATEMESIS [None]
  - REFUSAL OF TREATMENT BY PATIENT [None]
